FAERS Safety Report 8864722 (Version 1)
Quarter: 2012Q4

REPORT INFORMATION
  Report Type: 
  Country: US (occurrence: US)
  Receive Date: 20121024
  Receipt Date: 20121024
  Transmission Date: 20130627
  Serious: No
  Sender: FDA-Public Use
  Company Number: US-B.I. PHARMACEUTICALS,INC./RIDGEFIELD-2012-BP-25703BP

PATIENT
  Age: 82 Year
  Sex: Male

DRUGS (1)
  1. DULCOLAX TABLETS [Suspect]
     Indication: CONSTIPATION

REACTIONS (1)
  - Constipation [Unknown]
